FAERS Safety Report 13150302 (Version 1)
Quarter: 2017Q1

REPORT INFORMATION
  Report Type: Report from Study
  Country: US (occurrence: US)
  Receive Date: 20170124
  Receipt Date: 20170124
  Transmission Date: 20170428
  Serious: No
  Sender: FDA-Public Use
  Company Number: US-AMGEN-USASL2016177783

PATIENT
  Age: 62 Year
  Sex: Male

DRUGS (2)
  1. REPATHA [Suspect]
     Active Substance: EVOLOCUMAB
     Indication: CORONARY ARTERY DISEASE
     Dosage: 140 MG, Q2WK
     Route: 065
     Dates: start: 201608
  2. REPATHA [Suspect]
     Active Substance: EVOLOCUMAB
     Indication: STENT PLACEMENT
     Dosage: 140 MG, Q4WK
     Route: 065
     Dates: start: 201608

REACTIONS (4)
  - Off label use [Unknown]
  - Influenza like illness [Recovered/Resolved]
  - Unevaluable event [Recovered/Resolved]
  - Headache [Unknown]
